FAERS Safety Report 5279326-8 (Version None)
Quarter: 2007Q1

REPORT INFORMATION
  Report Type: 
  Country: None (occurrence: None)
  Receive Date: 20070328
  Receipt Date: 20060403
  Transmission Date: 20070707
  Serious: No
  Sender: FDA-Public Use
  Company Number: US-AMGEN-US157284

PATIENT
  Sex: Female

DRUGS (4)
  1. NEULASTA [Suspect]
     Indication: CHEMOTHERAPY
     Route: 058
     Dates: start: 20051001
  2. CYCLOPHOSPHAMIDE [Concomitant]
     Route: 065
  3. FLUOROURACIL [Concomitant]
     Route: 065
  4. DOXORUBICIN HYDROCHLORIDE [Concomitant]
     Route: 065

REACTIONS (10)
  - ABDOMINAL PAIN UPPER [None]
  - DYSPNOEA [None]
  - EATING DISORDER [None]
  - HALLUCINATION [None]
  - HYPERHIDROSIS [None]
  - INTESTINAL FUNCTIONAL DISORDER [None]
  - MONOPLEGIA [None]
  - NEUROGENIC BLADDER [None]
  - PALPITATIONS [None]
  - SUICIDAL IDEATION [None]
